FAERS Safety Report 7113385-2 (Version None)
Quarter: 2010Q4

REPORT INFORMATION
  Report Type: 
  Country: None (occurrence: None)
  Receive Date: 20101119
  Receipt Date: 20101109
  Transmission Date: 20110411
  Serious: Yes (Other)
  Sender: FDA-Public Use
  Company Number: PHHY2010JP76676

PATIENT
  Age: 67 Year
  Sex: Female

DRUGS (2)
  1. AREDIA [Suspect]
     Indication: MULTIPLE MYELOMA
     Dosage: UNK
  2. DISODIUM INCADRONATE [Concomitant]
     Indication: MULTIPLE MYELOMA
     Dosage: UNK

REACTIONS (1)
  - OSTEONECROSIS OF JAW [None]
